FAERS Safety Report 11806368 (Version 1)
Quarter: 2015Q4

REPORT INFORMATION
  Report Type: Spontaneous
  Country: JP (occurrence: JP)
  Receive Date: 20151207
  Receipt Date: 20151207
  Transmission Date: 20160305
  Serious: Yes (Other)
  Sender: FDA-Public Use
  Company Number: PHHY2015JP150158

PATIENT
  Age: 30 Year
  Sex: Female

DRUGS (6)
  1. LEVETIRACETAM. [Suspect]
     Active Substance: LEVETIRACETAM
     Indication: HASHIMOTO^S ENCEPHALOPATHY
     Dosage: 2000 MG, QD
     Route: 065
  2. IMMUNGLOBULIN [Suspect]
     Active Substance: HUMAN IMMUNOGLOBULIN G
     Indication: HASHIMOTO^S ENCEPHALOPATHY
     Dosage: 20 G, UNK
     Route: 042
  3. CARBAMAZEPINE. [Suspect]
     Active Substance: CARBAMAZEPINE
     Indication: HASHIMOTO^S ENCEPHALOPATHY
     Dosage: 600 MG, QD
     Route: 065
  4. VALPROATE SODIUM. [Suspect]
     Active Substance: VALPROATE SODIUM
     Indication: HASHIMOTO^S ENCEPHALOPATHY
     Dosage: 800 MG, QD
     Route: 065
  5. ACYCLOVIR. [Concomitant]
     Active Substance: ACYCLOVIR
     Indication: PRODUCT USED FOR UNKNOWN INDICATION
     Dosage: 1500 MG, QD
     Route: 065
  6. METHYLPREDNISOLONE. [Suspect]
     Active Substance: METHYLPREDNISOLONE
     Indication: HASHIMOTO^S ENCEPHALOPATHY
     Dosage: 1 G, UNK
     Route: 042

REACTIONS (1)
  - Drug ineffective [Unknown]
